FAERS Safety Report 5583713-8 (Version None)
Quarter: 2008Q1

REPORT INFORMATION
  Report Type: 
  Country: None (occurrence: None)
  Receive Date: 20080102
  Receipt Date: 20071218
  Transmission Date: 20080703
  Serious: Yes (Other)
  Sender: FDA-Public Use
  Company Number: B0500846A

PATIENT
  Age: 40 Year
  Sex: Male

DRUGS (3)
  1. LAMIVUDINE [Suspect]
     Indication: HIV INFECTION
  2. STAVUDINE [Suspect]
     Indication: HIV INFECTION
  3. LOPINAVIR AND RITONAVIR [Suspect]
     Indication: HIV INFECTION

REACTIONS (5)
  - ACID FAST BACILLI INFECTION [None]
  - ASTHENIA [None]
  - BODY TEMPERATURE INCREASED [None]
  - GRANULOMATOUS LIVER DISEASE [None]
  - HEPATOSPLENOMEGALY [None]
